FAERS Safety Report 10020806 (Version 2)
Quarter: 2014Q1

REPORT INFORMATION
  Report Type: Spontaneous
  Country: US (occurrence: US)
  Receive Date: 20140319
  Receipt Date: 20140319
  Transmission Date: 20141002
  Serious: Yes (Disabling)
  Sender: FDA-Public Use
  Company Number: US-GE HEALTHCARE MEDICAL DIAGNOSTICS-OSCN-PR-0806S-0363

PATIENT
  Age: 59 Year
  Sex: Female

DRUGS (7)
  1. OMNISCAN [Suspect]
     Indication: TRANSPLANT EVALUATION
     Dates: start: 19990105, end: 19990105
  2. OMNISCAN [Suspect]
     Indication: TRANSPLANT EVALUATION
     Dates: start: 20011025, end: 20011025
  3. OMNISCAN [Suspect]
     Indication: DIALYSIS DEVICE INSERTION
     Dates: start: 20040802, end: 20040802
  4. OMNISCAN [Suspect]
     Indication: TRANSPLANT EVALUATION
     Dates: start: 20060624, end: 20060624
  5. GADOLINIUM (UNSPECIFIED) [Suspect]
     Indication: PRODUCT USED FOR UNKNOWN INDICATION
     Dates: start: 19950124, end: 19950124
  6. GADOLINIUM (UNSPECIFIED) [Suspect]
     Dates: start: 19950126, end: 19950126
  7. PROHANCE [Suspect]
     Indication: PRODUCT USED FOR UNKNOWN INDICATION
     Dates: start: 19950124, end: 19950124

REACTIONS (1)
  - Nephrogenic systemic fibrosis [Not Recovered/Not Resolved]
